FAERS Safety Report 6453087-9 (Version None)
Quarter: 2009Q4

REPORT INFORMATION
  Report Type: 
  Country: None (occurrence: None)
  Receive Date: 20091123
  Receipt Date: 20091123
  Transmission Date: 20100525
  Serious: No
  Sender: FDA-Public Use
  Company Number: None

PATIENT
  Age: 82 Year
  Sex: Female
  Weight: 69.8539 kg

DRUGS (1)
  1. ACTONEL [Suspect]
     Indication: BONE DENSITY ABNORMAL
     Dosage: 1 PILL
     Dates: start: 20091013

REACTIONS (3)
  - DIZZINESS [None]
  - GASTRIC DISORDER [None]
  - INFLUENZA LIKE ILLNESS [None]
